FAERS Safety Report 4445667-7 (Version None)
Quarter: 2004Q3

REPORT INFORMATION
  Report Type: 
  Country: None (occurrence: None)
  Receive Date: 20040910
  Receipt Date: 20040825
  Transmission Date: 20050211
  Serious: Yes (Life-Threatening, Hospitalization)
  Sender: FDA-Public Use
  Company Number: US-AMGEN-KDL088828

PATIENT
  Sex: Female

DRUGS (1)
  1. ENBREL [Suspect]
     Indication: RHEUMATOID ARTHRITIS
     Route: 058
     Dates: start: 20040401

REACTIONS (6)
  - BRONCHITIS [None]
  - CONDITION AGGRAVATED [None]
  - CORONARY ARTERY DISEASE [None]
  - NASOPHARYNGITIS [None]
  - PULMONARY HAEMORRHAGE [None]
  - VOMITING [None]
